FAERS Safety Report 9267406 (Version 1)
Quarter: 2013Q2

REPORT INFORMATION
  Report Type: Spontaneous
  Country: US (occurrence: US)
  Receive Date: 20130502
  Receipt Date: 20130502
  Transmission Date: 20140414
  Serious: No
  Sender: FDA-Public Use
  Company Number: US-ASTRAZENECA-2013SE26628

PATIENT
  Sex: Female

DRUGS (7)
  1. SYMBICORT PMDI [Suspect]
     Indication: ASTHMA
     Route: 055
  2. SYMBICORT PMDI [Suspect]
     Indication: CHRONIC OBSTRUCTIVE PULMONARY DISEASE
     Route: 055
  3. PROAIR HFA [Suspect]
     Indication: BRONCHOSPASM
     Route: 065
  4. PROAIR HFA [Suspect]
     Indication: ASTHMA
     Route: 065
  5. PROAIR HFA [Suspect]
     Indication: CHRONIC OBSTRUCTIVE PULMONARY DISEASE
     Route: 065
  6. ALBUTEROL [Suspect]
     Indication: ASTHMA
     Route: 065
  7. ALBUTEROL [Suspect]
     Indication: CHRONIC OBSTRUCTIVE PULMONARY DISEASE
     Route: 065

REACTIONS (1)
  - Alopecia [Unknown]
